FAERS Safety Report 7464946-2 (Version None)
Quarter: 2011Q2

REPORT INFORMATION
  Report Type: 
  Country: None (occurrence: None)
  Receive Date: 20110509
  Receipt Date: 20110425
  Transmission Date: 20111010
  Serious: Yes (Hospitalization)
  Sender: FDA-Public Use
  Company Number: US-JNJFOC-20110411717

PATIENT
  Age: 3 Year
  Sex: Male

DRUGS (1)
  1. RISPERDAL [Suspect]
     Indication: PRODUCT USED FOR UNKNOWN INDICATION
     Dosage: 5.0 MG (0.5 ML)
     Route: 065

REACTIONS (2)
  - OVERDOSE [None]
  - INCORRECT DOSE ADMINISTERED [None]
